FAERS Safety Report 9287961 (Version 1)
Quarter: 2013Q2

REPORT INFORMATION
  Report Type: Spontaneous
  Country: US (occurrence: None)
  Receive Date: 20130513
  Receipt Date: 20130513
  Transmission Date: 20140414
  Serious: Yes (Other)
  Sender: FDA-Public Use
  Company Number: None

PATIENT
  Age: 15 Year
  Sex: Male
  Weight: 52.16 kg

DRUGS (1)
  1. MONTELUKAST [Suspect]
     Indication: MULTIPLE ALLERGIES
     Dosage: ONE PER DAY
     Dates: start: 20121215, end: 20130417

REACTIONS (4)
  - Headache [None]
  - Product packaging issue [None]
  - Product substitution issue [None]
  - Product quality issue [None]
